FAERS Safety Report 11140613 (Version 2)
Quarter: 2015Q2

REPORT INFORMATION
  Report Type: Report from Study
  Country: US (occurrence: US)
  Receive Date: 20150527
  Receipt Date: 20150624
  Transmission Date: 20150821
  Serious: Yes (Hospitalization)
  Sender: FDA-Public Use
  Company Number: US-AMGEN-USACT2015050737

PATIENT
  Age: 73 Year
  Sex: Male
  Weight: 94.3 kg

DRUGS (4)
  1. ASA [Concomitant]
     Active Substance: ASPIRIN
  2. CARFILZOMIB [Suspect]
     Active Substance: CARFILZOMIB
     Indication: PLASMA CELL MYELOMA
     Dosage: 82 MG, PER CHEMO REGIM
     Route: 042
     Dates: start: 20150507
  3. LENALIDOMIDE [Suspect]
     Active Substance: LENALIDOMIDE
     Indication: PLASMA CELL MYELOMA
     Dosage: 150 MG, UNK
     Route: 065
     Dates: start: 20150507, end: 20150512
  4. DEXAMETHASONE. [Suspect]
     Active Substance: DEXAMETHASONE
     Indication: PLASMA CELL MYELOMA
     Dosage: 40 MG, UNK
     Route: 065
     Dates: start: 20150507

REACTIONS (3)
  - Respiratory failure [Unknown]
  - Sepsis [Unknown]
  - Lung infection [Unknown]

NARRATIVE: CASE EVENT DATE: 20150512
